FAERS Safety Report 8958784 (Version 1)
Quarter: 2012Q4

REPORT INFORMATION
  Report Type: 
  Country: JP (occurrence: JP)
  Receive Date: 20121212
  Receipt Date: 20121212
  Transmission Date: 20130627
  Serious: No
  Sender: FDA-Public Use
  Company Number: JP-ELI_LILLY_AND_COMPANY-JP201210001149

PATIENT
  Age: 58 Year
  Sex: Female

DRUGS (3)
  1. CYMBALTA [Suspect]
     Indication: DIABETIC NEUROPATHY
     Dosage: 40 mg, qd
     Route: 048
     Dates: start: 201208
  2. LYRICA [Concomitant]
  3. ITRIZOLE [Concomitant]

REACTIONS (1)
  - Hepatic function abnormal [Unknown]
